FAERS Safety Report 6541065-0 (Version None)
Quarter: 2010Q1

REPORT INFORMATION
  Report Type: 
  Country: None (occurrence: None)
  Receive Date: 20100118
  Receipt Date: 20100108
  Transmission Date: 20100710
  Serious: Yes (Hospitalization)
  Sender: FDA-Public Use
  Company Number: GXKR2009CN13382

PATIENT
  Age: 74 Year
  Sex: Male

DRUGS (3)
  1. CLONAZEPAM (NGX) [Suspect]
     Indication: POOR QUALITY SLEEP
     Dosage: AT NIGHT
     Route: 065
  2. QIANLIEKANG [Concomitant]
     Dosage: 500 MG, PER NIGHT
  3. TAMSULOSIN HYDROCHLORIDE [Concomitant]
     Dosage: 0.2 MG/NIGHT

REACTIONS (7)
  - BRADYCARDIA [None]
  - CARDIAC ARREST [None]
  - CHEST DISCOMFORT [None]
  - DYSPNOEA [None]
  - ELECTROCARDIOGRAM RR INTERVAL PROLONGED [None]
  - HYPOTENSION [None]
  - PALPITATIONS [None]
